FAERS Safety Report 5889274-8 (Version None)
Quarter: 2008Q3

REPORT INFORMATION
  Report Type: 
  Country: None (occurrence: None)
  Receive Date: 20080917
  Receipt Date: 20080904
  Transmission Date: 20090109
  Serious: Yes (Hospitalization)
  Sender: FDA-Public Use
  Company Number: US024542

PATIENT
  Age: 69 Year
  Sex: Male
  Weight: 106.6 kg

DRUGS (7)
  1. ARSENIC TRIOXIDE [Suspect]
     Indication: MYELODYSPLASTIC SYNDROME
     Dosage: 0.1 MG/KG QD INTRAVENOUS
     Route: 042
     Dates: start: 20080804
  2. DECITABINE [Suspect]
     Indication: MYELODYSPLASTIC SYNDROME
     Dosage: 20 MG/M2 QD
     Dates: start: 20080804
  3. ASCORBIC ACID [Suspect]
     Indication: MYELODYSPLASTIC SYNDROME
     Dosage: 100 MG QD
     Dates: start: 20080804
  4. NEXIUM [Concomitant]
  5. PAXIL [Concomitant]
  6. GLYBURIDE [Concomitant]
  7. ACYCLOVIR [Concomitant]

REACTIONS (1)
  - ANAPHYLACTIC REACTION [None]
